FAERS Safety Report 12075204 (Version 1)
Quarter: 2016Q1

REPORT INFORMATION
  Report Type: Spontaneous
  Country: FR (occurrence: FR)
  Receive Date: 20160212
  Receipt Date: 20160212
  Transmission Date: 20160526
  Serious: Yes (Hospitalization, Disabling)
  Sender: FDA-Public Use
  Company Number: FR-B.I. PHARMACEUTICALS,INC./RIDGEFIELD-2016-BI-07621FF

PATIENT
  Age: 41 Year
  Sex: Male

DRUGS (6)
  1. NARAMIG [Suspect]
     Active Substance: NARATRIPTAN HYDROCHLORIDE
     Indication: PRODUCT USED FOR UNKNOWN INDICATION
     Route: 065
     Dates: start: 20160113, end: 20160113
  2. THALLIUM [Suspect]
     Active Substance: THALLIUM
     Indication: PRODUCT USED FOR UNKNOWN INDICATION
     Route: 065
     Dates: start: 20160113, end: 20160113
  3. PERSANTINE [Suspect]
     Active Substance: DIPYRIDAMOLE
     Indication: PRODUCT USED FOR UNKNOWN INDICATION
     Route: 048
     Dates: start: 20160113, end: 20160113
  4. PROZAC [Concomitant]
     Active Substance: FLUOXETINE HYDROCHLORIDE
     Indication: BULIMIA NERVOSA
     Dosage: 20 MG
     Route: 048
  5. TRANXENE T-TAB [Concomitant]
     Active Substance: CLORAZEPATE DIPOTASSIUM
     Indication: ANXIETY
     Dosage: 10 MG
     Route: 048
  6. SELOKEEN [Concomitant]
     Active Substance: METOPROLOL
     Indication: MIGRAINE
     Dosage: 200 MG
     Route: 048

REACTIONS (3)
  - Hemiplegia [Not Recovered/Not Resolved]
  - Headache [Not Recovered/Not Resolved]
  - Aphasia [Not Recovered/Not Resolved]

NARRATIVE: CASE EVENT DATE: 20160113
